FAERS Safety Report 6364168-2 (Version None)
Quarter: 2009Q3

REPORT INFORMATION
  Report Type: 
  Country: None (occurrence: None)
  Receive Date: 20090919
  Receipt Date: 20090727
  Transmission Date: 20100115
  Serious: Yes (Hospitalization)
  Sender: FDA-Public Use
  Company Number: US-ABBOTT-09P-163-0585074-00

PATIENT
  Sex: Female
  Weight: 83.99 kg

DRUGS (6)
  1. HUMIRA [Suspect]
     Indication: RHEUMATOID ARTHRITIS
     Route: 058
     Dates: start: 20021231, end: 20061201
  2. HUMIRA [Suspect]
     Dosage: RESTARTED ON HUMIRA PEN
     Dates: start: 20090701
  3. METHOTREXATE [Concomitant]
     Indication: DRUG USE FOR UNKNOWN INDICATION
     Dates: start: 20090701
  4. METHOTREXATE [Concomitant]
     Dates: end: 20061201
  5. CELEBREX [Concomitant]
     Indication: DRUG USE FOR UNKNOWN INDICATION
     Dates: start: 20090701
  6. CELEBREX [Concomitant]
     Dates: end: 20061201

REACTIONS (1)
  - BREAST CANCER [None]
